FAERS Safety Report 7871910-8 (Version None)
Quarter: 2011Q4

REPORT INFORMATION
  Report Type: 
  Country: None (occurrence: None)
  Receive Date: 20111029
  Receipt Date: 20110310
  Transmission Date: 20120403
  Serious: No
  Sender: FDA-Public Use
  Company Number: US-AMGEN-USASP2011001510

PATIENT
  Sex: Female

DRUGS (2)
  1. METHOTREXATE [Concomitant]
  2. ENBREL [Suspect]
     Indication: RHEUMATOID ARTHRITIS
     Dosage: 50 MG, QWK
     Dates: start: 20100330

REACTIONS (8)
  - HYPERHIDROSIS [None]
  - DYSPHONIA [None]
  - SINUS CONGESTION [None]
  - BREAST PAIN [None]
  - NASOPHARYNGITIS [None]
  - FATIGUE [None]
  - BREAST TENDERNESS [None]
  - PHARYNGITIS [None]
